FAERS Safety Report 4509778-X (Version None)
Quarter: 2004Q4

REPORT INFORMATION
  Report Type: 
  Country: None (occurrence: None)
  Receive Date: 20041124
  Receipt Date: 20040303
  Transmission Date: 20050328
  Serious: No
  Sender: FDA-Public Use
  Company Number: US-BRISTOL-MYERS SQUIBB COMPANY-12525036

PATIENT
  Age: 60 Year
  Sex: Female
  Weight: 95 kg

DRUGS (12)
  1. AVALIDE [Suspect]
     Indication: HYPERTENSION
     Dosage: 75/6.25 MG
     Route: 048
     Dates: start: 20040120, end: 20040219
  2. VALSARTAN [Concomitant]
     Indication: HYPERTENSION
     Route: 048
     Dates: end: 20040101
  3. ATORVASTATIN CALCIUM [Concomitant]
     Indication: HYPERLIPIDAEMIA
     Route: 048
  4. FENOFIBRATE [Concomitant]
     Indication: HYPERLIPIDAEMIA
     Route: 048
  5. CETIRIZINE HCL [Concomitant]
     Indication: HYPERSENSITIVITY
     Route: 048
  6. LEVOTHYROXINE SODIUM [Concomitant]
     Indication: HYPOTHYROIDISM
     Route: 048
  7. FLUOXETINE HCL [Concomitant]
     Indication: DEPRESSION
     Route: 048
  8. OMEPRAZOLE [Concomitant]
     Indication: GASTROOESOPHAGEAL REFLUX DISEASE
     Route: 048
  9. ESTRADIOL [Concomitant]
     Indication: HORMONE REPLACEMENT THERAPY
     Route: 062
  10. VITAMINS NOS [Concomitant]
     Indication: VITAMIN SUPPLEMENTATION
     Route: 048
  11. CALCIUM CARBONATE [Concomitant]
     Indication: MINERAL SUPPLEMENTATION
     Route: 048
  12. AMLODIPINE BESYLATE [Concomitant]
     Indication: HYPERTENSION
     Route: 048

REACTIONS (1)
  - ARTHRITIS [None]
